FAERS Safety Report 7152727-9 (Version None)
Quarter: 2010Q4

REPORT INFORMATION
  Report Type: 
  Country: None (occurrence: None)
  Receive Date: 20101213
  Receipt Date: 20101209
  Transmission Date: 20110411
  Serious: Yes (Life-Threatening, Hospitalization)
  Sender: FDA-Public Use
  Company Number: GB-PERRIGO-10GB015374

PATIENT
  Age: 40 Year
  Sex: Male
  Weight: 70 kg

DRUGS (3)
  1. IBUPROFEN [Suspect]
     Indication: ABDOMINAL PAIN UPPER
     Dosage: 400 MG, UNK
     Route: 048
     Dates: start: 20100901
  2. ANADIN [Suspect]
     Indication: ABDOMINAL PAIN UPPER
     Dosage: 2 DF, UNK
     Route: 048
     Dates: start: 20100801
  3. SALBUTAMOL [Concomitant]
     Indication: ASTHMA
     Dosage: UNK
     Route: 055

REACTIONS (1)
  - GASTRIC ULCER PERFORATION [None]
